FAERS Safety Report 12140832 (Version 1)
Quarter: 2016Q1

REPORT INFORMATION
  Report Type: Spontaneous
  Country: US (occurrence: None)
  Receive Date: 20160302
  Receipt Date: 20160302
  Transmission Date: 20160526
  Serious: Yes (Disabling, Other)
  Sender: FDA-Public Use
  Company Number: None

PATIENT
  Age: 73 Year
  Sex: Female
  Weight: 113.4 kg

DRUGS (6)
  1. DIABETES MEDICINE [Concomitant]
  2. VITAMINS [Concomitant]
     Active Substance: VITAMINS
  3. ASPIRIN. [Concomitant]
     Active Substance: ASPIRIN
  4. TYLENOL [Concomitant]
     Active Substance: ACETAMINOPHEN
  5. GLYBURIDE/METFORMIN 2.5-500MG TAB [Suspect]
     Active Substance: GLYBURIDE\METFORMIN
     Indication: DIABETES MELLITUS
     Route: 048
     Dates: start: 20160101, end: 20160215
  6. BLOOD PRESSURE MEDS [Concomitant]

REACTIONS (10)
  - Headache [None]
  - Weight decreased [None]
  - Diabetes mellitus [None]
  - Muscle twitching [None]
  - Nerve injury [None]
  - Fall [None]
  - Muscle spasms [None]
  - Nervousness [None]
  - Vomiting [None]
  - Balance disorder [None]

NARRATIVE: CASE EVENT DATE: 20160101
